FAERS Safety Report 17113174 (Version 11)
Quarter: 2021Q3

REPORT INFORMATION
  Report Type: Spontaneous
  Country: DE (occurrence: DE)
  Receive Date: 20191204
  Receipt Date: 20210914
  Transmission Date: 20211014
  Serious: Yes (Death, Life-Threatening, Hospitalization, Other)
  Sender: FDA-Public Use
  Company Number: DE-CELLTRION INC.-2019DE027035

PATIENT

DRUGS (43)
  1. RITUXIMAB. [Suspect]
     Active Substance: RITUXIMAB
     Indication: ENCEPHALITIS
     Dosage: 1 G (BETWEEN 2 AND 3 MONTHS AFTER DISEASE EXACERBATION)
     Route: 065
  2. DARATUMUMAB [Suspect]
     Active Substance: DARATUMUMAB
     Indication: ENCEPHALITIS AUTOIMMUNE
     Dosage: 16 MG/KG, EVERY 2 WEEKS (REMAINING FIVE CYCLES)
     Route: 041
  3. VELCADE [Suspect]
     Active Substance: BORTEZOMIB
     Indication: ENCEPHALITIS
     Dosage: 1?1.3 MG/M2
     Route: 065
  4. VELCADE [Suspect]
     Active Substance: BORTEZOMIB
     Dosage: UNK
     Route: 065
  5. RITUXIMAB. [Suspect]
     Active Substance: RITUXIMAB
     Indication: PLASMA CELL MYELOMA
     Dosage: 1 G (4 MONTHS AFTER DISEASE EXACERBATION)
     Route: 065
  6. DARZALEX [Suspect]
     Active Substance: DARATUMUMAB
     Indication: ENCEPHALITIS
     Dosage: 1?8 CYCLES
     Route: 042
  7. DARZALEX [Suspect]
     Active Substance: DARATUMUMAB
     Dosage: UNK
     Route: 065
  8. METHYLPREDNISOLONE. [Suspect]
     Active Substance: METHYLPREDNISOLONE
     Indication: ENCEPHALITIS
     Dosage: 5X1G
     Route: 065
  9. PREDNISOLONE. [Suspect]
     Active Substance: PREDNISOLONE
     Indication: ENCEPHALITIS AUTOIMMUNE
     Dosage: 5 MG, QD (TAPERING?REGIMEN)
     Route: 048
  10. ACICLOVIR [Concomitant]
     Active Substance: ACYCLOVIR
     Indication: INFECTION PROPHYLAXIS
     Dosage: 200 MG, QD
     Route: 065
  11. PLASMA [Concomitant]
     Active Substance: HUMAN PLASMA
     Indication: ENCEPHALITIS AUTOIMMUNE
     Dosage: 12X PLASMA EXCHANGE
     Route: 065
  12. PLASMA [Concomitant]
     Active Substance: HUMAN PLASMA
     Dosage: 8X PLASMA EXCHANGE
     Route: 065
  13. RITUXIMAB. [Suspect]
     Active Substance: RITUXIMAB
     Indication: IMMUNOSUPPRESSION
     Dosage: 1 G (12 MONTHS AFTER DISEASE EXACERBATION)
     Route: 065
  14. DARATUMUMAB [Suspect]
     Active Substance: DARATUMUMAB
     Indication: IMMUNOSUPPRESSION
     Dosage: 16 MG/KG, 1/WEEK (8 CYCLES)
     Route: 041
  15. ACICLOVIR [Concomitant]
     Active Substance: ACYCLOVIR
     Dosage: 200 MG/DAYS
  16. COTRIMOXAZOLE [Concomitant]
     Active Substance: SULFAMETHOXAZOLE\TRIMETHOPRIM
     Dosage: 960 MG, THREE TIMES A WEEK
     Route: 065
  17. PLASMA [Concomitant]
     Active Substance: HUMAN PLASMA
     Dosage: 25X PLASMA EXCHANGE
     Route: 065
  18. BORTEZOMIB. [Suspect]
     Active Substance: BORTEZOMIB
     Indication: IMMUNOSUPPRESSION
     Dosage: THREE CYCLES AT A DOSE OF 1?1.3 MG/M2
     Route: 065
  19. DARATUMUMAB [Suspect]
     Active Substance: DARATUMUMAB
     Indication: ENCEPHALITIS
     Dosage: 16 MG/KG INFUSION, FOR A TOTAL OF 13 CYCLES
     Route: 042
  20. DARZALEX [Suspect]
     Active Substance: DARATUMUMAB
     Indication: PLASMA CELL MYELOMA
     Dosage: 9?13 CYCLES
     Route: 042
  21. COTRIMOXAZOLE [Concomitant]
     Active Substance: SULFAMETHOXAZOLE\TRIMETHOPRIM
     Indication: INFECTION PROPHYLAXIS
     Dosage: 2880 MG, EVERY WEEK
  22. BORTEZOMIB. [Suspect]
     Active Substance: BORTEZOMIB
     Indication: ENCEPHALITIS
     Dosage: 3 CYCLES OF BORTEZOMIB 11.3 MG/M2
     Route: 065
  23. DARATUMUMAB [Suspect]
     Active Substance: DARATUMUMAB
     Dosage: 9?13 CYCLES, EVERY 2 WEEK
     Route: 042
  24. COTRIMOXAZOLE [Concomitant]
     Active Substance: SULFAMETHOXAZOLE\TRIMETHOPRIM
     Dosage: THREE TIMES A WEEK
     Route: 065
  25. BORTEZOMIB. [Suspect]
     Active Substance: BORTEZOMIB
     Indication: ENCEPHALITIS AUTOIMMUNE
     Dosage: THREE CYCLES AT A DOSE OF 1?1.3 MG/M2
     Route: 065
  26. DARATUMUMAB [Suspect]
     Active Substance: DARATUMUMAB
     Dosage: REMAINING FIVE CYCLES
     Route: 041
  27. DARATUMUMAB [Suspect]
     Active Substance: DARATUMUMAB
     Dosage: 1?8 CYCLES
     Route: 042
  28. DARATUMUMAB [Suspect]
     Active Substance: DARATUMUMAB
     Indication: ENCEPHALITIS AUTOIMMUNE
     Dosage: 16 MG/KG, 1/WEEK (8 CYCES)
     Route: 042
  29. DARATUMUMAB [Suspect]
     Active Substance: DARATUMUMAB
     Dosage: 16 MG/KG, Q2WEEKS (REMAINING FIVE CYCLES)
     Route: 042
  30. IMMUNE GLOBULIN (IMMUNOGLOBULINS NOS) [Suspect]
     Active Substance: IMMUNE GLOBULIN NOS
     Indication: ENCEPHALITIS
     Dosage: 2 G/KG
     Route: 042
  31. METHYLPREDNISOLONE. [Suspect]
     Active Substance: METHYLPREDNISOLONE
     Indication: ENCEPHALITIS AUTOIMMUNE
     Dosage: 5X500MG
     Route: 065
  32. PREDNISOLONE. [Suspect]
     Active Substance: PREDNISOLONE
     Dosage: RECEIVED FOR 2 AND HALF YEARS
     Route: 048
  33. COTRIMOXAZOLE [Concomitant]
     Active Substance: SULFAMETHOXAZOLE\TRIMETHOPRIM
     Dosage: 960 MG THRICE WEEKLY
     Route: 065
  34. PLASMA [Concomitant]
     Active Substance: HUMAN PLASMA
     Dosage: 6X PLASMA EXCHANGE
     Route: 065
  35. RITUXIMAB. [Suspect]
     Active Substance: RITUXIMAB
     Indication: ENCEPHALITIS
     Dosage: UNK
     Route: 065
  36. DARATUMUMAB [Suspect]
     Active Substance: DARATUMUMAB
     Dosage: 8 CYCES
     Route: 041
  37. IMMUNE GLOBULIN (IMMUNOGLOBULINS NOS) [Suspect]
     Active Substance: IMMUNE GLOBULIN NOS
     Indication: ENCEPHALITIS AUTOIMMUNE
     Dosage: DOSE: 2G/KG
     Route: 042
  38. PREDNISOLONE. [Suspect]
     Active Substance: PREDNISOLONE
     Indication: ENCEPHALITIS
     Dosage: 5 MG, TAPERING FASHION
     Route: 048
  39. ACICLOVIR [Concomitant]
     Active Substance: ACYCLOVIR
     Dosage: 200 MILLIGRAM DAILY;
     Route: 065
  40. RITUXIMAB. [Suspect]
     Active Substance: RITUXIMAB
     Indication: ENCEPHALITIS AUTOIMMUNE
     Dosage: 1 G (7 MONTHS AFTER DISEASE EXACERBATION)
     Route: 065
  41. IMMUNOGLOBULIN /00025201/ [Suspect]
     Active Substance: HUMAN IMMUNOGLOBULIN G
     Indication: ENCEPHALITIS AUTOIMMUNE
     Dosage: DOSE: 2G/KG
     Route: 042
  42. METHYLPREDNISOLONE. [Suspect]
     Active Substance: METHYLPREDNISOLONE
     Indication: IMMUNOSUPPRESSION
     Dosage: UNK
     Route: 065
  43. COTRIMOXAZOLE [Concomitant]
     Active Substance: SULFAMETHOXAZOLE\TRIMETHOPRIM
     Dosage: THREE TIMES A WEEK
     Route: 065

REACTIONS (21)
  - Condition aggravated [Recovering/Resolving]
  - Encephalitis autoimmune [Recovering/Resolving]
  - Drug ineffective [Unknown]
  - Off label use [Fatal]
  - Cognitive disorder [Recovering/Resolving]
  - Seizure [Recovering/Resolving]
  - Cellulitis [Recovered/Resolved]
  - Septic shock [Recovered/Resolved]
  - Urinary tract infection [Unknown]
  - Bacterial infection [Fatal]
  - Breathing-related sleep disorder [Unknown]
  - Rebound effect [Recovering/Resolving]
  - Bacterial sepsis [Fatal]
  - Aggression [Unknown]
  - Cerebellar ataxia [Recovering/Resolving]
  - Therapeutic response unexpected [Fatal]
  - Product use in unapproved indication [Fatal]
  - Neuromyotonia [Recovering/Resolving]
  - Infection [Unknown]
  - Hand fracture [Unknown]
  - Off label use [Unknown]

NARRATIVE: CASE EVENT DATE: 2017
